FAERS Safety Report 21174924 (Version 1)
Quarter: 2022Q3

REPORT INFORMATION
  Report Type: Spontaneous
  Country: US (occurrence: US)
  Receive Date: 20220805
  Receipt Date: 20220805
  Transmission Date: 20221026
  Serious: No
  Sender: FDA-Public Use
  Company Number: US-Accord-247161

PATIENT
  Age: 36 Year
  Sex: Female
  Weight: 84 kg

DRUGS (8)
  1. DOCETAXEL [Suspect]
     Active Substance: DOCETAXEL
     Indication: Breast cancer
     Dosage: DOSE: 144 MG IN 0.9% SODIUM CHLORIDE 250 ML
     Dates: start: 20130122, end: 20130122
  2. CYTOXAN [Suspect]
     Active Substance: CYCLOPHOSPHAMIDE
     Indication: Breast cancer
     Dosage: DOSE: 1152 MG IN 0.9% SODIUM CHLORIDE 500 ML?DRUG WASTAGE: 348 MG OF?CYCLOPHOSPHAMIDE
     Dates: start: 20130122, end: 20130122
  3. DOCETAXEL [Suspect]
     Active Substance: DOCETAXEL
     Indication: Breast cancer
     Dosage: DOSE: 143 MG IN 0.9% SODIUM CHLORIDE 250 ML
     Dates: start: 20130212, end: 20130212
  4. CYTOXAN [Suspect]
     Active Substance: CYCLOPHOSPHAMIDE
     Indication: Breast cancer
     Dosage: DOSE: 1146 MG IN 0.9% SODIUM CHLORIDE 500 ML?DRUG WASTAGE: 354 MG OF?CYCLOPHOSPHAMIDE
     Dates: start: 20130212, end: 20130212
  5. DOCETAXEL [Suspect]
     Active Substance: DOCETAXEL
     Indication: Breast cancer
     Dosage: DOSE: 146 MG IN 0.9% SODIUM CHLORIDE 250 ML
     Dates: start: 20130305, end: 20130305
  6. CYTOXAN [Suspect]
     Active Substance: CYCLOPHOSPHAMIDE
     Indication: Breast cancer
     Dosage: DOSE: 1164 MG IN 0.9% SODIUM CHLORIDE 500 ML?DRUG WASTAGE: 336 MG OF?CYCLOPHOSPHAMIDE
     Dates: start: 20130305, end: 20130305
  7. DOCETAXEL [Suspect]
     Active Substance: DOCETAXEL
     Indication: Breast cancer
     Dosage: DOSE: 147 MG IN 0.9% SODIUM CHLORIDE 250 ML
     Dates: start: 20130326, end: 20130326
  8. CYTOXAN [Suspect]
     Active Substance: CYCLOPHOSPHAMIDE
     Indication: Breast cancer
     Dosage: DOSE: 1176 MG IN 0.9% SODIUM CHLORIDE 500 ML?DRUG WASTAGE: 324 MG OF?CYCLOPHOSPHAMIDE
     Dates: start: 20130326, end: 20130326

REACTIONS (1)
  - Keratitis [Unknown]
